FAERS Safety Report 17459765 (Version 1)
Quarter: 2020Q1

REPORT INFORMATION
  Report Type: Spontaneous
  Country: US (occurrence: US)
  Receive Date: 20200225
  Receipt Date: 20200225
  Transmission Date: 20200409
  Serious: Yes (Hospitalization, Other)
  Sender: FDA-Public Use
  Company Number: US-PFIZER INC-693593

PATIENT
  Age: 21 Month
  Sex: Female
  Weight: 9.9 kg

DRUGS (3)
  1. PRECEDEX [Suspect]
     Active Substance: DEXMEDETOMIDINE HYDROCHLORIDE
     Indication: SEDATIVE THERAPY
     Dosage: 2 UG/KG, (OVER 10 MINUTES)
     Route: 040
  2. PRECEDEX [Suspect]
     Active Substance: DEXMEDETOMIDINE HYDROCHLORIDE
     Dosage: 60 UG/KG, (DOSE AT 1 MCG/KG/MINUTE EQUIVALENT TO 60 MCG/KG/HR)
     Route: 041
  3. OXYGEN. [Concomitant]
     Active Substance: OXYGEN
     Indication: OXYGEN THERAPY
     Dosage: UNK
     Route: 055

REACTIONS (7)
  - Accidental overdose [Recovered/Resolved]
  - Blood pressure systolic increased [Recovered/Resolved]
  - Product use issue [Recovered/Resolved]
  - Sedation complication [Recovered/Resolved]
  - Off label use [Recovered/Resolved]
  - Heart rate decreased [Recovered/Resolved]
  - Incorrect drug administration rate [Recovered/Resolved]
